FAERS Safety Report 5789013-5 (Version None)
Quarter: 2008Q2

REPORT INFORMATION
  Report Type: 
  Country: None (occurrence: None)
  Receive Date: 20080626
  Receipt Date: 20080619
  Transmission Date: 20081010
  Serious: Yes (Other)
  Sender: FDA-Public Use
  Company Number: A0719186A

PATIENT
  Sex: Female
  Weight: 1.4 kg

DRUGS (2)
  1. EPZICOM [Suspect]
     Indication: HIV INFECTION
     Dosage: 1TAB PER DAY
     Dates: start: 20071203
  2. REYATAZ [Suspect]
     Indication: HIV INFECTION
     Dosage: 800MG PER DAY
     Dates: start: 20071203

REACTIONS (4)
  - DRUG EXPOSURE DURING PREGNANCY [None]
  - LIVE BIRTH [None]
  - PREMATURE BABY [None]
  - ULTRASOUND SCAN ABNORMAL [None]
